FAERS Safety Report 9031173 (Version 1)
Quarter: 2013Q1

REPORT INFORMATION
  Report Type: Report from Study
  Country: JP (occurrence: JP)
  Receive Date: 20130123
  Receipt Date: 20130123
  Transmission Date: 20140127
  Serious: Yes (Other)
  Sender: FDA-Public Use
  Company Number: JP-VERTEX PHARMACEUTICAL INC.-2012-022243

PATIENT
  Age: 59 Year
  Sex: Female

DRUGS (10)
  1. VX-950 (TELAPREVIR) [Suspect]
     Indication: CHRONIC HEPATITIS C
     Dosage: 1000 MG, QD
     Route: 048
     Dates: start: 20120710, end: 20121001
  2. RIBAVIRIN [Suspect]
     Indication: CHRONIC HEPATITIS C
     Dosage: 400 MG, QD
     Route: 048
     Dates: start: 20120710, end: 20120814
  3. RIBAVIRIN [Suspect]
     Dosage: 200 MG, QD
     Route: 048
     Dates: start: 20120815, end: 20121203
  4. PEGINTERFERON ALFA-2B [Suspect]
     Indication: CHRONIC HEPATITIS C
     Dosage: 0.7 ?G/KG, QW
     Route: 058
     Dates: start: 20120710, end: 20120724
  5. PEGINTERFERON ALFA-2B [Suspect]
     Dosage: 0.6 ?G/KG, QW
     Route: 058
     Dates: start: 20120730
  6. PEGINTERFERON ALFA-2B [Suspect]
     Dosage: 0.5 ?G/KG, UNK
     Route: 058
     Dates: end: 20121203
  7. EPADEL [Concomitant]
     Dosage: 1800 MG, QD
     Route: 048
  8. FEROTYM [Concomitant]
     Dosage: 100 MG, QD
     Route: 048
  9. PARIET [Concomitant]
     Dosage: 10 MG, QD
     Route: 048
  10. CLARITIN REDITABS [Concomitant]
     Dosage: 10 MG, QD
     Route: 048

REACTIONS (8)
  - Renal disorder [Recovered/Resolved]
  - Anaemia [Not Recovered/Not Resolved]
  - Anaemia [Not Recovered/Not Resolved]
  - Anaemia [Not Recovered/Not Resolved]
  - Platelet count decreased [Not Recovered/Not Resolved]
  - Platelet count decreased [Not Recovered/Not Resolved]
  - Platelet count decreased [Not Recovered/Not Resolved]
  - Hyperuricaemia [Recovered/Resolved]
